FAERS Safety Report 5492419-5 (Version None)
Quarter: 2007Q4

REPORT INFORMATION
  Report Type: 
  Country: None (occurrence: None)
  Receive Date: 20071015
  Receipt Date: 20070813
  Transmission Date: 20080405
  Serious: No
  Sender: FDA-Public Use
  Company Number: 2007SP002828

PATIENT
  Age: 47 Year
  Sex: Female

DRUGS (2)
  1. LUNESTA [Suspect]
     Dosage: 3 MG;HS;ORAL, 3 MG;HS;ORAL
     Route: 048
     Dates: start: 20070201, end: 20070701
  2. LUNESTA [Suspect]
     Dosage: 3 MG;HS;ORAL, 3 MG;HS;ORAL
     Route: 048
     Dates: start: 20070201

REACTIONS (3)
  - DRUG INEFFECTIVE [None]
  - DYSGEUSIA [None]
  - INSOMNIA [None]
